FAERS Safety Report 17588395 (Version 1)
Quarter: 2020Q1

REPORT INFORMATION
  Report Type: Spontaneous
  Country: DE (occurrence: DE)
  Receive Date: 20200326
  Receipt Date: 20200326
  Transmission Date: 20200409
  Serious: Yes (Death, Other)
  Sender: FDA-Public Use
  Company Number: DE-GILEAD-2020-0456657

PATIENT
  Age: 65 Year
  Sex: Male

DRUGS (1)
  1. ZYDELIG [Suspect]
     Active Substance: IDELALISIB
     Indication: BURKITT^S LYMPHOMA
     Dosage: 150 MG, BID
     Route: 065

REACTIONS (3)
  - PIK3CA-activated mutation [Unknown]
  - Off label use [Recovered/Resolved]
  - Tumour flare [Fatal]
